FAERS Safety Report 24158369 (Version 2)
Quarter: 2024Q3

REPORT INFORMATION
  Report Type: Report from Study
  Country: AE (occurrence: None)
  Receive Date: 20240731
  Receipt Date: 20240802
  Transmission Date: 20241016
  Serious: Yes (Hospitalization)
  Sender: ASTRAZENECA
  Company Number: 2024A170196

PATIENT
  Sex: Female

DRUGS (1)
  1. TAGRISSO [Suspect]
     Active Substance: OSIMERTINIB
     Indication: Non-small cell lung cancer
     Route: 048
     Dates: start: 202206

REACTIONS (1)
  - Pain [Unknown]

NARRATIVE: CASE EVENT DATE: 20240701
